FAERS Safety Report 8143930-X (Version None)
Quarter: 2012Q1

REPORT INFORMATION
  Report Type: 
  Country: None (occurrence: None)
  Receive Date: 20120103
  Receipt Date: 20111011
  Transmission Date: 20120608
  Serious: No
  Sender: FDA-Public Use
  Company Number: AE-2011-002231

PATIENT
  Age: 36 Year
  Sex: Male
  Weight: 101.1521 kg

DRUGS (5)
  1. PEGASYS [Concomitant]
  2. PROMETHAZINE [Concomitant]
  3. RIBAVIRIN [Concomitant]
  4. ZOLOFT [Concomitant]
  5. INCIVEK [Suspect]
     Dosage: 2250 MG (750 MG, 1 IN 8 HR) , ORAL
     Route: 048
     Dates: start: 20110926

REACTIONS (2)
  - DIARRHOEA [None]
  - VOMITING [None]
